FAERS Safety Report 16252877 (Version 1)
Quarter: 2019Q2

REPORT INFORMATION
  Report Type: Spontaneous
  Country: ES (occurrence: ES)
  Receive Date: 20190429
  Receipt Date: 20190429
  Transmission Date: 20190711
  Serious: Yes (Other)
  Sender: FDA-Public Use
  Company Number: ES-GILEAD-2019-0403989

PATIENT
  Age: 28 Year
  Sex: Male

DRUGS (7)
  1. GANCICLOVIR. [Concomitant]
     Active Substance: GANCICLOVIR
  2. DESCOVY [Suspect]
     Active Substance: EMTRICITABINE\TENOFOVIR ALAFENAMIDE FUMARATE
     Indication: HIV INFECTION
     Dosage: UNK
     Route: 065
     Dates: start: 201807, end: 201810
  3. RALTEGRAVIR. [Concomitant]
     Active Substance: RALTEGRAVIR
  4. PENICILLIN [PENICILLIN NOS] [Concomitant]
     Active Substance: PENICILLIN
  5. PREDNISONE. [Concomitant]
     Active Substance: PREDNISONE
  6. COTRIMOXAZOLE [Concomitant]
     Active Substance: SULFAMETHOXAZOLE\TRIMETHOPRIM
  7. AZITHROMYCIN ANHYDROUS. [Concomitant]
     Active Substance: AZITHROMYCIN ANHYDROUS

REACTIONS (4)
  - Colitis [Unknown]
  - Immune reconstitution inflammatory syndrome [Unknown]
  - Virologic failure [Not Recovered/Not Resolved]
  - Cholestasis [Unknown]

NARRATIVE: CASE EVENT DATE: 201807
